FAERS Safety Report 5528364-6 (Version None)
Quarter: 2007Q4

REPORT INFORMATION
  Report Type: 
  Country: None (occurrence: None)
  Receive Date: 20071121
  Receipt Date: 20071120
  Transmission Date: 20080405
  Serious: Yes (Life-Threatening, Hospitalization, Other)
  Sender: FDA-Public Use
  Company Number: 07112316

PATIENT
  Age: 49 Year
  Sex: Male

DRUGS (1)
  1. ACETAZOLAMIDE [Suspect]
     Indication: ATAXIA
     Dosage: 250MG, QID, ORAL
     Route: 048

REACTIONS (8)
  - AMMONIA INCREASED [None]
  - ATAXIA [None]
  - CONDITION AGGRAVATED [None]
  - DIZZINESS [None]
  - DYSARTHRIA [None]
  - HYPERAMMONAEMIA [None]
  - METABOLIC ACIDOSIS [None]
  - NYSTAGMUS [None]
